FAERS Safety Report 16399119 (Version 1)
Quarter: 2019Q2

REPORT INFORMATION
  Report Type: Spontaneous
  Country: US (occurrence: US)
  Receive Date: 20190606
  Receipt Date: 20190606
  Transmission Date: 20190711
  Serious: Yes (Hospitalization)
  Sender: FDA-Public Use
  Company Number: US-PFIZER INC-2019241797

PATIENT
  Sex: Male

DRUGS (1)
  1. GABAPENTIN. [Suspect]
     Active Substance: GABAPENTIN
     Dosage: 3600 MG, 3X/DAY

REACTIONS (4)
  - Renal failure [Recovered/Resolved]
  - Prescribed overdose [Unknown]
  - Crying [Unknown]
  - Withdrawal syndrome [Unknown]
